FAERS Safety Report 9788227 (Version 1)
Quarter: 2013Q4

REPORT INFORMATION
  Report Type: Report from Study
  Country: CN (occurrence: CN)
  Receive Date: 20131230
  Receipt Date: 20131230
  Transmission Date: 20140711
  Serious: Yes (Death)
  Sender: FDA-Public Use
  Company Number: CN-SA-2013SA135488

PATIENT
  Sex: 0

DRUGS (5)
  1. FLUDARABINE PHOSPHATE [Suspect]
     Indication: BONE MARROW CONDITIONING REGIMEN
     Dosage: -10 TO-6 DAYS
     Route: 065
  2. CYTARABINE [Suspect]
     Indication: BONE MARROW CONDITIONING REGIMEN
     Dosage: -10 TO-6 DAYS DOSE:2 GRAM(S)/SQUARE METER
     Route: 065
  3. THERAPEUTIC RADIOPHARMACEUTICALS [Suspect]
     Indication: BONE MARROW CONDITIONING REGIMEN
     Dosage: 4.5 GY/DAY ADN -5, -4 DAYS
     Route: 065
  4. CYCLOPHOSPHAMIDE [Suspect]
     Indication: BONE MARROW CONDITIONING REGIMEN
     Dosage: -3,-2 DAYS
     Route: 065
  5. VP-16 [Suspect]
     Indication: BONE MARROW CONDITIONING REGIMEN
     Dosage: -3,-2 DAYS
     Route: 065

REACTIONS (1)
  - Toxicity to various agents [Fatal]
